FAERS Safety Report 18392493 (Version 2)
Quarter: 2020Q4

REPORT INFORMATION
  Report Type: Spontaneous
  Country: US (occurrence: US)
  Receive Date: 20201016
  Receipt Date: 20201117
  Transmission Date: 20210114
  Serious: Yes (Other)
  Sender: FDA-Public Use
  Company Number: US-BAYER-2020-220637

PATIENT
  Age: 30 Year
  Sex: Male

DRUGS (1)
  1. CIPRO [Suspect]
     Active Substance: CIPROFLOXACIN HYDROCHLORIDE
     Indication: PROSTATITIS
     Dosage: 500 MG, BID
     Dates: start: 20180801, end: 20180821

REACTIONS (17)
  - Amnesia [None]
  - Personality change [None]
  - Nerve injury [Recovering/Resolving]
  - Dysarthria [None]
  - Disturbance in attention [None]
  - Confusional state [None]
  - Depression [None]
  - Memory impairment [None]
  - Headache [None]
  - Dissociation [None]
  - Visual impairment [None]
  - Bedridden [None]
  - Cerebrospinal fluid leakage [Recovering/Resolving]
  - Constipation [None]
  - Speech disorder [None]
  - Tendon injury [Recovering/Resolving]
  - Gait inability [None]

NARRATIVE: CASE EVENT DATE: 201808
